FAERS Safety Report 5412298-1 (Version None)
Quarter: 2007Q3

REPORT INFORMATION
  Report Type: 
  Country: None (occurrence: None)
  Receive Date: 20070713
  Receipt Date: 20070522
  Transmission Date: 20080115
  Serious: No
  Sender: FDA-Public Use
  Company Number: 2007SP001920

PATIENT
  Age: 67 Year
  Sex: Female

DRUGS (5)
  1. LUNESTA [Suspect]
     Indication: INSOMNIA RELATED TO ANOTHER MENTAL CONDITION
     Dosage: 90 MG;1X;ORAL   4 MG;HS;ORAL
     Route: 048
     Dates: start: 20070515, end: 20070515
  2. LUNESTA [Suspect]
     Indication: INSOMNIA RELATED TO ANOTHER MENTAL CONDITION
     Dosage: 90 MG;1X;ORAL   4 MG;HS;ORAL
     Route: 048
     Dates: start: 20050531
  3. ANALGESICS [Suspect]
     Dosage: ORAL
     Route: 048
     Dates: start: 20070515
  4. DEPAKOTE [Concomitant]
  5. SEROQUEL [Concomitant]

REACTIONS (5)
  - AMNESIA [None]
  - CONFUSIONAL STATE [None]
  - GAIT DISTURBANCE [None]
  - MULTIPLE DRUG OVERDOSE [None]
  - VOMITING [None]
